FAERS Safety Report 22002549 (Version 1)
Quarter: 2023Q1

REPORT INFORMATION
  Report Type: Spontaneous
  Country: CO (occurrence: CO)
  Receive Date: 20230217
  Receipt Date: 20230217
  Transmission Date: 20230418
  Serious: No
  Sender: FDA-Public Use
  Company Number: CO-AMGEN-COLSP2023021359

PATIENT
  Age: 69 Year
  Sex: Female

DRUGS (9)
  1. NEULASTA [Suspect]
     Active Substance: PEGFILGRASTIM
     Indication: Prophylaxis
     Dosage: 6 MILLIGRAM (DAY 7)
     Route: 058
  2. NEULASTA [Suspect]
     Active Substance: PEGFILGRASTIM
     Dosage: 6 MILLIGRAM (DAY 7)
     Route: 058
  3. RITUXIMAB [Concomitant]
     Active Substance: RITUXIMAB
     Dosage: 375 MILLIGRAM/SQ. METER, Q4WK (DAY 1)
     Route: 040
  4. ETOPOSIDE [Concomitant]
     Active Substance: ETOPOSIDE
     Dosage: 50 MILLIGRAM/SQ. METER, Q4WK (DAY 2-5)
     Route: 040
  5. VINCRISTINE [Concomitant]
     Active Substance: VINCRISTINE
     Dosage: 4 MILLIGRAM/SQ. METER, Q4WK (DAY 2-5)
     Route: 040
  6. DOXORUBICIN HYDROCHLORIDE [Concomitant]
     Active Substance: DOXORUBICIN HYDROCHLORIDE
     Dosage: 10 MILLIGRAM/SQ. METER, Q4WK (DAY 6)
     Route: 040
  7. CYCLOPHOSPHAMIDE [Concomitant]
     Active Substance: CYCLOPHOSPHAMIDE
     Dosage: 750 MILLIGRAM/SQ. METER, Q4WK (DAY 6)
     Route: 040
  8. HYDROCHLOROTHIAZIDE\LOSARTAN [Concomitant]
     Active Substance: HYDROCHLOROTHIAZIDE\LOSARTAN
     Dosage: 1 DOSAGE FORM, QD
     Route: 065
  9. COLCHICINE [Concomitant]
     Active Substance: COLCHICINE
     Dosage: 0.5 MILLIGRAM, BID (0.5 MG/12H)

REACTIONS (2)
  - Wrong technique in product usage process [Unknown]
  - Device malfunction [Unknown]

NARRATIVE: CASE EVENT DATE: 20230129
